FAERS Safety Report 12169396 (Version 1)
Quarter: 2016Q1

REPORT INFORMATION
  Report Type: Spontaneous
  Country: US (occurrence: US)
  Receive Date: 20160310
  Receipt Date: 20160310
  Transmission Date: 20160526
  Serious: No
  Sender: FDA-Public Use
  Company Number: US-BAYER-2016-037861

PATIENT
  Age: 74 Year
  Sex: Female
  Weight: 68.27 kg

DRUGS (4)
  1. PHILLIPS^ CHEWABLE TABLETS MINT [Suspect]
     Active Substance: MAGNESIUM HYDROXIDE
     Indication: CONSTIPATION
     Dosage: 1-4 DF, UNK
     Route: 048
  2. MIRALAX [Suspect]
     Active Substance: POLYETHYLENE GLYCOL 3350
     Indication: CONSTIPATION
  3. PHILLIPS^ LAXATIVE DIETARY SUPPLEMENT [Suspect]
     Active Substance: MAGNESIUM OXIDE
     Indication: CONSTIPATION
     Dosage: 2-4 DF, UNK
     Route: 048
     Dates: start: 201602
  4. MILK OF MAGNESIA [Suspect]
     Active Substance: MAGNESIUM HYDROXIDE
     Indication: CONSTIPATION
     Dosage: 6 TABLESPOON, PRN
     Route: 048
     Dates: start: 2015

REACTIONS (7)
  - Drug ineffective [None]
  - Product use issue [None]
  - Abdominal pain upper [None]
  - Dysphagia [None]
  - Off label use [None]
  - Drug ineffective [None]
  - Pain [None]

NARRATIVE: CASE EVENT DATE: 201602
